FAERS Safety Report 5226323-4 (Version None)
Quarter: 2007Q1

REPORT INFORMATION
  Report Type: 
  Country: None (occurrence: None)
  Receive Date: 20070129
  Receipt Date: 20061130
  Transmission Date: 20070707
  Serious: Yes (Death)
  Sender: FDA-Public Use
  Company Number: T200601671

PATIENT
  Age: 3 Year
  Sex: Female

DRUGS (1)
  1. OXYCODONE HCL [Suspect]
     Dosage: ORAL
     Route: 048

REACTIONS (3)
  - ANOXIC ENCEPHALOPATHY [None]
  - HEART RATE INCREASED [None]
  - RESPIRATORY ARREST [None]
